FAERS Safety Report 5987547-1 (Version None)
Quarter: 2008Q4

REPORT INFORMATION
  Report Type: 
  Country: None (occurrence: None)
  Receive Date: 20081209
  Receipt Date: 20081201
  Transmission Date: 20090506
  Serious: Yes (Hospitalization, Other)
  Sender: FDA-Public Use
  Company Number: US-SANOFI-SYNTHELABO-F01200801480

PATIENT
  Sex: Female

DRUGS (2)
  1. OXALIPLATIN [Suspect]
     Indication: COLORECTAL CANCER
     Dosage: UNK
     Route: 041
  2. CAPECITABINE [Suspect]
     Dosage: BID
     Route: 048
     Dates: start: 20080731

REACTIONS (5)
  - DEHYDRATION [None]
  - DIPLOPIA [None]
  - DISEASE PROGRESSION [None]
  - HYPOAESTHESIA [None]
  - THROAT TIGHTNESS [None]
